FAERS Safety Report 6588862-3 (Version None)
Quarter: 2010Q1

REPORT INFORMATION
  Report Type: 
  Country: None (occurrence: None)
  Receive Date: 20100218
  Receipt Date: 20100215
  Transmission Date: 20100710
  Serious: Yes (Hospitalization)
  Sender: FDA-Public Use
  Company Number: A0844964A

PATIENT
  Sex: Female

DRUGS (3)
  1. AVANDIA [Suspect]
     Dosage: 4MG PER DAY
     Route: 048
     Dates: start: 20100205, end: 20100207
  2. ATENOLOL [Concomitant]
     Dosage: 50MG PER DAY
     Dates: start: 20060801
  3. METFORMIN HYDROCHLORIDE [Concomitant]
     Dosage: 500MG THREE TIMES PER DAY
     Dates: start: 20060901

REACTIONS (2)
  - CHEST PAIN [None]
  - PALPITATIONS [None]
